FAERS Safety Report 17157773 (Version 1)
Quarter: 2019Q4

REPORT INFORMATION
  Report Type: Report from Study
  Country: CA (occurrence: CA)
  Receive Date: 20191216
  Receipt Date: 20191216
  Transmission Date: 20200122
  Serious: Yes (Hospitalization, Other)
  Sender: FDA-Public Use
  Company Number: CA-TAKEDA-2019TUS069877

PATIENT
  Age: 54 Year
  Sex: Male

DRUGS (2)
  1. PURINETHOL [Concomitant]
     Active Substance: MERCAPTOPURINE
     Dosage: 125 MILLIGRAM, QD
  2. VEDOLIZUMAB [Suspect]
     Active Substance: VEDOLIZUMAB
     Indication: COLITIS ULCERATIVE
     Dosage: 300 MILLIGRAM
     Route: 042
     Dates: start: 20171026

REACTIONS (1)
  - Pulmonary embolism [Unknown]
